FAERS Safety Report 10090584 (Version 1)
Quarter: 2014Q2

REPORT INFORMATION
  Report Type: Spontaneous
  Country: US (occurrence: None)
  Receive Date: 20140417
  Receipt Date: 20140417
  Transmission Date: 20141212
  Serious: Yes (Hospitalization)
  Sender: FDA-Public Use
  Company Number: UTC-047147

PATIENT
  Age: 63 Year
  Sex: Male

DRUGS (1)
  1. TYVASO (0.6 MILLIGRAM/MILLILITERS, AEROSOL FOR INHALATION) (TREPROSTINIL SODIUM) [Suspect]
     Indication: PULMONARY ARTERIAL HYPERTENSION
     Dosage: (4 IN 1 D), INHALATION
     Route: 055
     Dates: start: 20130910

REACTIONS (3)
  - Cerebrovascular accident [None]
  - Device malfunction [None]
  - Drug dose omission [None]
